FAERS Safety Report 7757526-2 (Version None)
Quarter: 2011Q3

REPORT INFORMATION
  Report Type: 
  Country: None (occurrence: None)
  Receive Date: 20110916
  Receipt Date: 20110909
  Transmission Date: 20111222
  Serious: Yes (Death, Hospitalization)
  Sender: FDA-Public Use
  Company Number: US-ROCHE-799736

PATIENT
  Sex: Female
  Weight: 95.3 kg

DRUGS (127)
  1. FENOPROFEN CALCIUM [Concomitant]
     Dates: start: 20101115
  2. PLAQUENIL [Concomitant]
     Dosage: 200 MG,1 BID
     Dates: start: 20110325
  3. VIT B COMPLEX [Concomitant]
     Dosage: ONCE DAILY
     Dates: start: 20100405
  4. CALCIUM CARBONATE/VITAMIN D NOS [Concomitant]
     Dosage: 600 MG ONCE DAILY
     Dates: start: 20101115
  5. FLONASE [Concomitant]
     Dosage: 50 MCG, 2 QD
     Dates: start: 20110325
  6. SENNA [Concomitant]
     Dosage: 187 MG,QD ,PM
     Dates: start: 20100707
  7. SENNA [Concomitant]
     Dosage: 187 MG,QD ,PM
     Dates: start: 20101013
  8. VIT D [Concomitant]
     Dosage: ONCE DAILY
     Dates: start: 20101013
  9. VIT D [Concomitant]
     Dosage: ONCE DAILY
     Dates: start: 20101115
  10. ORENCIA [Concomitant]
     Dates: start: 20101115
  11. TYLENOL W/ CODEINE NO. 3 [Concomitant]
     Dates: start: 20101013
  12. ACTEMRA [Suspect]
     Route: 042
     Dates: start: 20110429
  13. AMITRIPTYLINE HCL [Concomitant]
     Dates: start: 20100707
  14. METHOTREXATE [Concomitant]
     Dosage: 25 MG/ML INJ,10 ML SOLUTION /WEEK
     Dates: start: 20100405
  15. LEUCOVORIN CALCIUM [Concomitant]
     Dosage: 5 MG,2TABS 12 P MTX
     Dates: start: 20101013
  16. LEUCOVORIN CALCIUM [Concomitant]
     Dosage: 5 MG,2TABS 12 P MTX
     Dates: start: 20101115
  17. NYSTATIN [Concomitant]
     Dosage: 1,00,000 SUSP 5X QD
     Dates: start: 20100707
  18. PLAQUENIL [Concomitant]
     Dosage: 200 MG,1 BID
     Dates: start: 20101115
  19. BACTROBAN [Concomitant]
     Dosage: 2% OINTMENT AT NIGHT
     Dates: start: 20101013
  20. PATANOL [Concomitant]
     Dosage: 0.1% AT NIGHT
     Dates: start: 20100405
  21. PATANOL [Concomitant]
     Dosage: 0.1% AT NIGHT
     Dates: start: 20110325
  22. SENNA [Concomitant]
     Dosage: 187 MG,QD ,PM
     Dates: start: 20101115
  23. SENNA [Concomitant]
     Dosage: 187 MG,QD ,PM
     Dates: start: 20110325
  24. VIT C [Concomitant]
     Dosage: 500 MG,ONCE DAILY
     Dates: start: 20110325
  25. COMBIGAN [Concomitant]
     Dosage: EYE DROPS
     Dates: start: 20100707
  26. ACTEMRA [Suspect]
     Route: 042
     Dates: start: 20110401
  27. AMITRIPTYLINE HCL [Concomitant]
     Dates: start: 20100405
  28. METHOTREXATE [Concomitant]
     Dosage: 25 MG/ML INJ,10 ML SOLUTION /WEEK
     Dates: start: 20101013
  29. METHOTREXATE [Concomitant]
     Dosage: 25 MG/ML INJ,10 ML SOLUTION /WEEK
     Dates: start: 20110325
  30. LEUCOVORIN CALCIUM [Concomitant]
     Dosage: 5 MG,2TABS 12 P MTX
     Dates: start: 20100405
  31. LEUCOVORIN CALCIUM [Concomitant]
     Dosage: 5 MG,2TABS 12 P MTX
     Dates: start: 20100707
  32. NYSTATIN [Concomitant]
     Dosage: 1,00,000 SUSP 5X QD
     Dates: start: 20100405
  33. NYSTATIN [Concomitant]
     Dosage: PM, 1,00,000 SUSP 5X QD
     Dates: start: 20101013
  34. POTKLOR [Concomitant]
     Dosage: 10 MCQ,18/DAY
     Dates: start: 20101115
  35. ASPIRIN [Concomitant]
     Dosage: 81 MG ,ONCE DAILY
     Dates: start: 20100405
  36. VIT B COMPLEX [Concomitant]
     Dosage: ONCE DAILY
     Dates: start: 20110325
  37. BACTROBAN [Concomitant]
     Dosage: 2% OINTMENT AT NIGHT
     Dates: start: 20101115
  38. CALCIUM CARBONATE/VITAMIN D NOS [Concomitant]
     Dosage: 600 MG ONCE DAILY
     Dates: start: 20101013
  39. FLONASE [Concomitant]
     Dosage: 50 MCG, 2 QD,AT NIGHT
     Dates: start: 20101013
  40. PATANOL [Concomitant]
     Dosage: 0.1% AT NIGHT
     Dates: start: 20100707
  41. ZAROXOLYN [Concomitant]
     Dosage: 5 MG AT NIGHT
     Dates: start: 20100707
  42. COMBIGAN [Concomitant]
     Dosage: EYE DROPS
     Dates: start: 20110325
  43. ORENCIA [Concomitant]
     Dates: start: 20110325
  44. TYLENOL W/ CODEINE NO. 3 [Concomitant]
     Dosage: AT NIGHT
     Dates: start: 20110707
  45. POTKLOR [Concomitant]
     Dosage: 10 MCQ,18/DAY
     Dates: start: 20100405
  46. POTKLOR [Concomitant]
     Dosage: 10 MCQ,18/DAY
     Dates: start: 20100707
  47. POTKLOR [Concomitant]
     Dosage: 10 MCQ,12/DAY
     Dates: start: 20101013
  48. BACTROBAN [Concomitant]
     Dosage: 2% OINTMENT AT NIGHT
     Dates: start: 20110325
  49. CALCIUM CARBONATE/VITAMIN D NOS [Concomitant]
     Dosage: 2% OINTMENT AT NIGHT
     Dates: start: 20100707
  50. LIPITOR [Concomitant]
     Dosage: 10 MG QD
     Dates: start: 20100707
  51. TYLENOL-500 [Concomitant]
     Dosage: 325 MG,PM
     Dates: start: 20100405
  52. VALIUM [Concomitant]
     Dosage: 5 MG,ONCE DAILY,AT NIGHT
     Dates: start: 20101115
  53. ZAROXOLYN [Concomitant]
     Dosage: 5 MG AT NIGHT
     Dates: start: 20101013
  54. COMBIGAN [Concomitant]
     Dosage: EYE DROPS
     Dates: start: 20101013
  55. VIT D [Concomitant]
     Dosage: ONCE DAILY
     Dates: start: 20110325
  56. CYMBALTA [Concomitant]
     Dosage: 60 MG,ONCE DAILY
     Dates: start: 20110325
  57. AMITRIPTYLINE HCL [Concomitant]
     Dates: start: 20101013
  58. AMITRIPTYLINE HCL [Concomitant]
     Dates: start: 20101115
  59. FENOPROFEN CALCIUM [Concomitant]
     Dates: start: 20100405
  60. PLAQUENIL [Concomitant]
     Dosage: 200 MG,1 BID
     Dates: start: 20100707
  61. PLAQUENIL [Concomitant]
     Dosage: 200 MG,1 BID
     Dates: start: 20101013
  62. VIT B COMPLEX [Concomitant]
     Dosage: ONCE DAILY
     Dates: start: 20100707
  63. VIT B COMPLEX [Concomitant]
     Dosage: ONCE DAILY
     Dates: start: 20101013
  64. CALCIUM CARBONATE/VITAMIN D NOS [Concomitant]
     Dosage: 600 MG ONCE DAILY
     Dates: start: 20100405
  65. CALCIUM CARBONATE/VITAMIN D NOS [Concomitant]
     Dosage: 600 MG ONCE DAILY
     Dates: start: 20110325
  66. FLONASE [Concomitant]
     Dosage: 50 MCG, 2 QD
     Dates: start: 20100405
  67. LIPITOR [Concomitant]
     Dosage: 10 MG QD
     Dates: start: 20100405
  68. LIPITOR [Concomitant]
     Dosage: 10 MG QD
     Dates: start: 20110325
  69. PATANOL [Concomitant]
     Dosage: 0.1% AT NIGHT
     Dates: start: 20101115
  70. VALIUM [Concomitant]
     Dosage: 5 MG,ONCE DAILY,AT NIGHT
     Dates: start: 20100707
  71. VIT C [Concomitant]
     Dosage: 500 MG,ONCE DAILY
     Dates: start: 20100707
  72. COMBIGAN [Concomitant]
     Dosage: EYE DROPS
     Dates: start: 20100405
  73. CYMBALTA [Concomitant]
     Dosage: 60 MG ONCE DAILY
     Dates: start: 20100707
  74. ORENCIA [Concomitant]
     Dates: start: 20101013
  75. ACTEMRA [Suspect]
     Route: 042
     Dates: start: 20110304
  76. FOLGARD [Concomitant]
  77. NYSTATIN [Concomitant]
     Dosage: 1,00,000 SUSP 5X QD
     Dates: start: 20101115
  78. ASPIRIN [Concomitant]
     Dosage: 81 MG ,ONCE DAILY
     Dates: start: 20100707
  79. BACTROBAN [Concomitant]
     Dosage: 2% OINTMENT AT NIGHT
     Dates: start: 20100405
  80. FLONASE [Concomitant]
     Dosage: 50 MCG, 2 QD
     Dates: start: 20101115
  81. LASIX [Concomitant]
     Dosage: 20 MG,1 QD,PM
     Dates: start: 20100405
  82. LASIX [Concomitant]
     Dosage: 20 MG,1 QD,PM
     Dates: start: 20100707
  83. LASIX [Concomitant]
     Dosage: 20 MG,1 QD,PM
     Dates: start: 20101013
  84. LASIX [Concomitant]
     Dosage: 20 MG,1 QD,PM
     Dates: start: 20110325
  85. LIPITOR [Concomitant]
     Dosage: 10 MG QD
     Dates: start: 20101115
  86. SENNA [Concomitant]
     Dosage: 187 MG,QD ,PM
     Dates: start: 20100405
  87. ZAROXOLYN [Concomitant]
     Dosage: 5 MG AT NIGHT
     Dates: start: 20101115
  88. PREDNISONE [Concomitant]
     Dates: start: 20101115
  89. ACTEMRA [Suspect]
     Route: 042
     Dates: start: 20110106
  90. FENOPROFEN CALCIUM [Concomitant]
     Dates: start: 20100707
  91. FENOPROFEN CALCIUM [Concomitant]
     Dates: start: 20101013
  92. FENOPROFEN CALCIUM [Concomitant]
     Dates: start: 20110325
  93. METHOTREXATE [Concomitant]
     Dosage: 25 MG/ML INJ,10 ML SOLUTION /WEEK
     Dates: start: 20100707
  94. METHOTREXATE [Concomitant]
     Dosage: 25 MG/ML INJ,10 ML SOLUTION /WEEK
     Dates: start: 20101115
  95. LEUCOVORIN CALCIUM [Concomitant]
     Dosage: 5 MG,2TABS 12 P MTX
     Dates: start: 20110325
  96. NYSTATIN [Concomitant]
     Dosage: 1,00,000 SUSP 5X QD
     Dates: start: 20110325
  97. PLAQUENIL [Concomitant]
     Dosage: 200 MG,1 BID
     Dates: start: 20100405
  98. ULTRAM [Concomitant]
     Dates: start: 20100405
  99. VIT B COMPLEX [Concomitant]
     Dosage: ONCE DAILY
     Dates: start: 20101115
  100. BACTROBAN [Concomitant]
     Dosage: 2% OINTMENT AT NIGHT
     Dates: start: 20100707
  101. LASIX [Concomitant]
     Dates: start: 20101115
  102. LIPITOR [Concomitant]
     Dosage: 10 MG QD
     Dates: start: 20101013
  103. VALIUM [Concomitant]
     Dosage: 5 MG,ONCE DAILY,AT NIGHT
     Dates: start: 20100405
  104. VALIUM [Concomitant]
     Dosage: 5 MG,ONCE DAILY,AT NIGHT
     Dates: start: 20110325
  105. VIT C [Concomitant]
     Dosage: 500 MG,ONCE DAILY
     Dates: start: 20101013
  106. ZAROXOLYN [Concomitant]
     Dosage: 5 MG AT NIGHT
     Dates: start: 20100405
  107. ZAROXOLYN [Concomitant]
     Dosage: 5 MG AT NIGHT
     Dates: start: 20110325
  108. CYMBALTA [Concomitant]
     Dosage: 60 MG,ONCE DAILY
     Dates: start: 20101115
  109. ORENCIA [Concomitant]
     Dates: start: 20100707
  110. ACTEMRA [Suspect]
     Route: 042
     Dates: start: 20110203
  111. AMITRIPTYLINE HCL [Concomitant]
     Dates: start: 20110325
  112. ENBREL [Concomitant]
     Dates: start: 20100405, end: 20100707
  113. POTKLOR [Concomitant]
     Dosage: 10 MCQ,18/DAY
     Dates: start: 20110325
  114. ULTRAM [Concomitant]
     Dates: start: 20100707
  115. ULTRAM [Concomitant]
     Dates: start: 20101013
  116. ULTRAM [Concomitant]
     Dates: start: 20101115
  117. ULTRAM [Concomitant]
     Dates: start: 20110325
  118. FLONASE [Concomitant]
     Dosage: 50 MCG, 2 QD
     Dates: start: 20100707
  119. PATANOL [Concomitant]
     Dosage: 0.1% AT NIGHT
     Dates: start: 20101013
  120. TYLENOL-500 [Concomitant]
     Dosage: 325 MG,PM
     Dates: start: 20100707
  121. VALIUM [Concomitant]
     Dosage: 5 MG,ONCE DAILY,AT NIGHT
     Dates: start: 20101013
  122. VIT C [Concomitant]
     Dosage: 500 MG,ONCE DAILY
     Dates: start: 20100405
  123. VIT C [Concomitant]
     Dosage: 500 MG,ONCE DAILY
     Dates: start: 20101115
  124. COMBIGAN [Concomitant]
     Dosage: EYE DROPS
     Dates: start: 20101115
  125. VIT D [Concomitant]
     Dosage: ONCE DAILY
     Dates: start: 20100707
  126. CYMBALTA [Concomitant]
     Dosage: 60 MG,ONCE DAILY
     Dates: start: 20101013
  127. TYLENOL W/ CODEINE NO. 3 [Concomitant]
     Dates: start: 20101115

REACTIONS (3)
  - PNEUMONIA [None]
  - ANKLE FRACTURE [None]
  - CARDIAC ARREST [None]
